FAERS Safety Report 8826122 (Version 1)
Quarter: 2012Q4

REPORT INFORMATION
  Report Type: 
  Country: US (occurrence: US)
  Receive Date: 20121008
  Receipt Date: 20121008
  Transmission Date: 20130627
  Serious: Yes (Hospitalization, Other)
  Sender: FDA-Public Use
  Company Number: US-009507513-2009SP035328

PATIENT

DRUGS (8)
  1. NUVARING [Suspect]
     Indication: CONTRACEPTION
     Dosage: UNK UNK, QM
     Route: 067
     Dates: start: 200704, end: 200711
  2. VITAMINS (UNSPECIFIED) [Concomitant]
     Dosage: 1 DF, QD
  3. ASCORBIC ACID [Concomitant]
     Dosage: 1 DF, QD
  4. VITAMIN E [Concomitant]
     Dosage: 1 DF, QD
  5. OMEGA-3 MARINE TRIGLYCERIDES [Concomitant]
     Dosage: 1 DF, QD
  6. FLAXSEED [Concomitant]
     Dosage: 1 DF, QD
  7. SELENIUM (UNSPECIFIED) [Concomitant]
     Dosage: 1 DF, QD
  8. ADVIL MIGRAINE [Concomitant]
     Indication: MIGRAINE
     Dosage: UNK UNK, PRN

REACTIONS (3)
  - Atelectasis [Unknown]
  - Pulmonary embolism [Unknown]
  - Deep vein thrombosis [Recovered/Resolved]
